FAERS Safety Report 5950714-7 (Version None)
Quarter: 2008Q4

REPORT INFORMATION
  Report Type: 
  Country: None (occurrence: None)
  Receive Date: 20081022
  Receipt Date: 20080825
  Transmission Date: 20090506
  Serious: No
  Sender: FDA-Public Use
  Company Number: ALL1-2008-02290

PATIENT
  Age: 6 Year
  Sex: Male
  Weight: 30.8 kg

DRUGS (2)
  1. VYVANSE [Suspect]
     Indication: ATTENTION DEFICIT/HYPERACTIVITY DISORDER
     Dosage: 30 MG, 1X/DAY:QD,ORAL; 20 MG, 1X/DAY:QD,ORAL
     Route: 048
     Dates: start: 20070101, end: 20070101
  2. VYVANSE [Suspect]
     Indication: ATTENTION DEFICIT/HYPERACTIVITY DISORDER
     Dosage: 30 MG, 1X/DAY:QD,ORAL; 20 MG, 1X/DAY:QD,ORAL
     Route: 048
     Dates: start: 20080101

REACTIONS (2)
  - DRUG EFFECT INCREASED [None]
  - PERSONALITY CHANGE [None]
